APPROVED DRUG PRODUCT: FURADANTIN
Active Ingredient: NITROFURANTOIN
Strength: 100MG
Dosage Form/Route: TABLET;ORAL
Application: N008693 | Product #002
Applicant: PROCTER AND GAMBLE PHARMACEUTICALS INC SUB PROCTER AND GAMBLE CO
Approved: Approved Prior to Jan 1, 1982 | RLD: No | RS: No | Type: DISCN